FAERS Safety Report 20855011 (Version 1)
Quarter: 2022Q2

REPORT INFORMATION
  Report Type: Spontaneous
  Country: US (occurrence: None)
  Receive Date: 20220519
  Receipt Date: 20220519
  Transmission Date: 20220720
  Serious: No
  Sender: FDA-Public Use
  Company Number: None

PATIENT
  Sex: Male

DRUGS (6)
  1. OFEV [Suspect]
     Active Substance: NINTEDANIB
  2. FUROSEMIDE [Concomitant]
     Active Substance: FUROSEMIDE
  3. POTASSIUM [Concomitant]
     Active Substance: POTASSIUM
  4. SIMVASTATIN [Concomitant]
     Active Substance: SIMVASTATIN
  5. VITAMIN D, C, E [Concomitant]
  6. IRON [Concomitant]
     Active Substance: IRON

REACTIONS (3)
  - Abdominal pain upper [None]
  - Vomiting [None]
  - Diarrhoea [None]
